FAERS Safety Report 7594124-8 (Version None)
Quarter: 2011Q3

REPORT INFORMATION
  Report Type: 
  Country: None (occurrence: None)
  Receive Date: 20110706
  Receipt Date: 20110621
  Transmission Date: 20111222
  Serious: No
  Sender: FDA-Public Use
  Company Number: PL-GENENTECH-320192

PATIENT
  Age: 46 Year
  Sex: Male
  Weight: 102 kg

DRUGS (5)
  1. VINCRISTINE [Concomitant]
     Indication: B-CELL LYMPHOMA
     Dosage: 1.4 MG/M2, Q21D
     Route: 042
     Dates: start: 20100831, end: 20101214
  2. PREDNISOLONE [Concomitant]
     Indication: PRODUCT USED FOR UNKNOWN INDICATION
  3. RITUXAN [Suspect]
     Indication: B-CELL LYMPHOMA
     Dosage: 375 MG/M2, Q21D
     Route: 042
     Dates: start: 20100831
  4. DOXORUBICIN HCL [Suspect]
     Indication: B-CELL LYMPHOMA
     Dosage: 50 MG/M2, Q21D
     Route: 042
     Dates: start: 20100831, end: 20101214
  5. CYCLOPHOSPHAMIDE [Concomitant]
     Indication: B-CELL LYMPHOMA
     Dosage: 750 MG/M2, Q21D
     Route: 042
     Dates: start: 20100831, end: 20101214

REACTIONS (6)
  - BONE MARROW DISORDER [None]
  - LYMPHADENOPATHY [None]
  - VENOUS THROMBOSIS LIMB [None]
  - ARRHYTHMIA [None]
  - TROPONIN INCREASED [None]
  - PROSTATOMEGALY [None]
